FAERS Safety Report 6644638-X (Version None)
Quarter: 2010Q1

REPORT INFORMATION
  Report Type: 
  Country: None (occurrence: None)
  Receive Date: 20100322
  Receipt Date: 20100315
  Transmission Date: 20100710
  Serious: Yes (Hospitalization)
  Sender: FDA-Public Use
  Company Number: US-GENENTECH-299255

PATIENT
  Sex: Female
  Weight: 59.1 kg

DRUGS (3)
  1. RITUXAN [Suspect]
     Indication: NON-HODGKIN'S LYMPHOMA
     Dosage: UNK
     Route: 042
     Dates: start: 20030101, end: 20050901
  2. RITUXAN [Suspect]
     Dosage: UNK, 1/WEEK
     Route: 042
     Dates: start: 20050901
  3. ANTIDEPRESSANT NOS [Concomitant]
     Indication: DRUG USE FOR UNKNOWN INDICATION

REACTIONS (1)
  - HEART RATE IRREGULAR [None]
